FAERS Safety Report 9748205 (Version 1)
Quarter: 2013Q4

REPORT INFORMATION
  Report Type: Spontaneous
  Country: US (occurrence: None)
  Receive Date: 20131209
  Receipt Date: 20131209
  Transmission Date: 20140711
  Serious: No
  Sender: FDA-Public Use
  Company Number: None

PATIENT
  Age: 66 Year
  Sex: Female

DRUGS (1)
  1. NEXAVAR 200MG BAYER [Suspect]
     Indication: NEOPLASM MALIGNANT
     Route: 048
     Dates: start: 20120229

REACTIONS (4)
  - Diarrhoea [None]
  - Dry mouth [None]
  - Dry eye [None]
  - Hypertension [None]
